FAERS Safety Report 19011941 (Version 3)
Quarter: 2021Q1

REPORT INFORMATION
  Report Type: Spontaneous
  Country: DE (occurrence: DE)
  Receive Date: 20210315
  Receipt Date: 20210326
  Transmission Date: 20210420
  Serious: Yes (Other)
  Sender: FDA-Public Use
  Company Number: DE-ALXN-A202103143

PATIENT
  Age: 35 Year
  Sex: Female

DRUGS (4)
  1. FIRDAPSE [Concomitant]
     Active Substance: AMIFAMPRIDINE PHOSPHATE
     Indication: PRODUCT USED FOR UNKNOWN INDICATION
     Dosage: 10 MG, 1?1?1?1?1
     Route: 065
  2. SOLIRIS [Suspect]
     Active Substance: ECULIZUMAB
     Indication: MYASTHENIA GRAVIS
     Dosage: 1200 MG, Q2W
     Route: 065
     Dates: start: 20201102
  3. IMMUNOGLOBULIN I.V [Concomitant]
     Active Substance: HUMAN IMMUNOGLOBULIN G
     Indication: PRODUCT USED FOR UNKNOWN INDICATION
     Dosage: 90 G/ 4?5 WEEKS
     Route: 042
  4. L?THYROXINE                        /00068001/ [Concomitant]
     Active Substance: LEVOTHYROXINE
     Indication: PRODUCT USED FOR UNKNOWN INDICATION
     Dosage: 25 UNK, 1?0?0
     Route: 065

REACTIONS (1)
  - Mastoiditis [Recovered/Resolved]

NARRATIVE: CASE EVENT DATE: 20210226
